FAERS Safety Report 16052997 (Version 1)
Quarter: 2019Q1

REPORT INFORMATION
  Report Type: Spontaneous
  Country: US (occurrence: US)
  Receive Date: 20190308
  Receipt Date: 20190308
  Transmission Date: 20190418
  Serious: No
  Sender: FDA-Public Use
  Company Number: US-009507513-1903USA003766

PATIENT
  Age: 69 Year
  Sex: Female

DRUGS (16)
  1. RANITIDINE. [Concomitant]
     Active Substance: RANITIDINE
  2. LYRICA [Concomitant]
     Active Substance: PREGABALIN
  3. TOPIRAMATE. [Concomitant]
     Active Substance: TOPIRAMATE
  4. BENEFIBER [Concomitant]
     Active Substance: STARCH, WHEAT
  5. HYOPHEN [Concomitant]
     Active Substance: BENZOIC ACID\HYOSCYAMINE SULFATE\METHENAMINE\METHYLENE BLUE\PHENYL SALICYLATE
  6. BIOCODEX FLORASTOR [Concomitant]
  7. PHILLIPS FIBER GOOD GUMMIES [Concomitant]
  8. FERROUS SULFATE. [Concomitant]
     Active Substance: FERROUS SULFATE
  9. MECLIZINE [Concomitant]
     Active Substance: MECLIZINE HYDROCHLORIDE
  10. DIFICID [Suspect]
     Active Substance: FIDAXOMICIN
     Indication: CLOSTRIDIUM DIFFICILE INFECTION
     Dosage: 1 TABLET (200 MG), TWICE DAILY
     Route: 048
     Dates: start: 20190301
  11. ASACOL [Concomitant]
     Active Substance: MESALAMINE
  12. BUDESONIDE. [Concomitant]
     Active Substance: BUDESONIDE
  13. MYRBETRIQ [Concomitant]
     Active Substance: MIRABEGRON
  14. DULOXETINE HYDROCHLORIDE. [Concomitant]
     Active Substance: DULOXETINE HYDROCHLORIDE
  15. ASPIRIN. [Concomitant]
     Active Substance: ASPIRIN
  16. HYOSCYAMINE. [Concomitant]
     Active Substance: HYOSCYAMINE

REACTIONS (1)
  - Diarrhoea [Not Recovered/Not Resolved]

NARRATIVE: CASE EVENT DATE: 20190304
